FAERS Safety Report 5868410-3 (Version None)
Quarter: 2008Q3

REPORT INFORMATION
  Report Type: 
  Country: None (occurrence: None)
  Receive Date: 20080903
  Receipt Date: 20080901
  Transmission Date: 20090109
  Serious: Yes (Hospitalization)
  Sender: FDA-Public Use
  Company Number: US-ASTRAZENECA-2008AC02370

PATIENT
  Age: 43 Year
  Sex: Female
  Weight: 60 kg

DRUGS (4)
  1. ATENOLOL [Suspect]
     Dosage: 5 - 10 G
     Route: 048
  2. PROMAZINE HYDROCHLORIDE [Concomitant]
     Route: 048
  3. LORAZEPAM [Concomitant]
     Route: 048
  4. CLONAZEPAM [Concomitant]
     Route: 048

REACTIONS (1)
  - OVERDOSE [None]
